FAERS Safety Report 15204401 (Version 3)
Quarter: 2023Q2

REPORT INFORMATION
  Report Type: Spontaneous
  Country: FR (occurrence: FR)
  Receive Date: 20180726
  Receipt Date: 20230403
  Transmission Date: 20230721
  Serious: Yes (Death, Other)
  Sender: FDA-Public Use
  Company Number: FR-PFIZER INC-2018152557

PATIENT
  Age: 68 Year
  Sex: Female

DRUGS (15)
  1. FLUOROURACIL [Suspect]
     Active Substance: FLUOROURACIL
     Indication: Breast cancer
     Dosage: 1500 MG/M2, TOTAL
     Route: 065
  2. FLUOROURACIL [Suspect]
     Active Substance: FLUOROURACIL
     Indication: Benign breast neoplasm
  3. ETOPOSIDE [Suspect]
     Active Substance: ETOPOSIDE
     Indication: Breast cancer
     Dosage: 450 MG/M2, TOTAL
     Route: 065
  4. ETOPOSIDE [Suspect]
     Active Substance: ETOPOSIDE
     Indication: Benign breast neoplasm
  5. MITOMYCIN [Suspect]
     Active Substance: MITOMYCIN
     Indication: Benign breast neoplasm
     Dosage: 45 MG/M2, TOTAL
     Route: 065
  6. MITOMYCIN [Suspect]
     Active Substance: MITOMYCIN
     Indication: Breast cancer
  7. DOXORUBICIN [Suspect]
     Active Substance: DOXORUBICIN
     Indication: Breast cancer
     Dosage: 200 MG/M2, TOTAL
     Route: 065
  8. DOXORUBICIN [Suspect]
     Active Substance: DOXORUBICIN
     Indication: Benign breast neoplasm
  9. VINDESINE [Suspect]
     Active Substance: VINDESINE
     Indication: Benign breast neoplasm
     Dosage: 12 MG/M2, TOTAL
     Route: 065
  10. VINDESINE [Suspect]
     Active Substance: VINDESINE
     Indication: Breast cancer
  11. VINCRISTINE SULFATE [Suspect]
     Active Substance: VINCRISTINE SULFATE
     Indication: Benign breast neoplasm
     Dosage: 6 MG/M2, UNK
     Route: 065
  12. VINCRISTINE SULFATE [Suspect]
     Active Substance: VINCRISTINE SULFATE
     Indication: Breast cancer
  13. CYCLOPHOSPHAMIDE [Suspect]
     Active Substance: CYCLOPHOSPHAMIDE
     Indication: Benign breast neoplasm
     Dosage: 1500 MG/M2, TOTAL
     Route: 065
  14. CYCLOPHOSPHAMIDE [Suspect]
     Active Substance: CYCLOPHOSPHAMIDE
     Indication: Breast cancer
  15. ETOPOSIDE [Suspect]
     Active Substance: ETOPOSIDE
     Indication: Benign breast neoplasm
     Dosage: 40 MG/M2, UNK
     Route: 065

REACTIONS (2)
  - Acute promyelocytic leukaemia [Fatal]
  - Second primary malignancy [Fatal]
